FAERS Safety Report 13612128 (Version 1)
Quarter: 2017Q2

REPORT INFORMATION
  Report Type: Spontaneous
  Country: DK (occurrence: DK)
  Receive Date: 20170605
  Receipt Date: 20170605
  Transmission Date: 20170830
  Serious: Yes (Other)
  Sender: FDA-Public Use
  Company Number: DK-NOVOPROD-547373

PATIENT
  Age: 64 Year
  Sex: Female

DRUGS (5)
  1. FEMANOR /00876401/ [Suspect]
     Active Substance: ESTRADIOL\NORETHINDRONE ACETATE
     Indication: OSTEOPOROSIS
     Dates: start: 199806, end: 2014
  2. MIRTAZAPIN [Concomitant]
     Active Substance: MIRTAZAPINE
     Indication: DEPRESSED MOOD
     Dosage: UNK
     Dates: start: 20090312, end: 200908
  3. KLIOGEST [Suspect]
     Active Substance: ESTROGENS
     Indication: HOT FLUSH
     Dosage: UNK
     Dates: start: 199806, end: 201406
  4. APOZEPAM [Concomitant]
     Indication: DEPRESSED MOOD
     Dosage: UNK
     Dates: start: 20090312
  5. FLUANXOL                           /00109702/ [Concomitant]
     Active Substance: FLUPENTIXOL
     Indication: ANXIETY
     Dates: start: 2008

REACTIONS (12)
  - Hypertension [Unknown]
  - Ovarian injury [Unknown]
  - Gallbladder injury [Unknown]
  - Uterine leiomyoma [Unknown]
  - Oedema peripheral [Unknown]
  - Uterine pain [Unknown]
  - Hypermetabolism [Unknown]
  - Uterine enlargement [Unknown]
  - Decreased appetite [Unknown]
  - Liver injury [Unknown]
  - Uterine injury [Unknown]
  - Abdominal distension [Unknown]

NARRATIVE: CASE EVENT DATE: 2014
